FAERS Safety Report 7174477 (Version 3)
Quarter: 2014Q1

REPORT INFORMATION
  Report Type: Report from Study
  Country: DE (occurrence: DE)
  Receive Date: 20091112
  Receipt Date: 20140227
  Transmission Date: 20141002
  Serious: Yes (Death)
  Sender: FDA-Public Use
  Company Number: DE-ROCHE-667103

PATIENT
  Age: 51 Year
  Sex: Male

DRUGS (9)
  1. MYCOPHENOLATE MOFETIL [Suspect]
     Indication: PROPHYLAXIS AGAINST TRANSPLANT REJECTION
     Route: 048
  2. BASILIXIMAB [Suspect]
     Indication: PROPHYLAXIS AGAINST TRANSPLANT REJECTION
     Route: 065
  3. TACROLIMUS [Suspect]
     Indication: PROPHYLAXIS AGAINST TRANSPLANT REJECTION
     Route: 048
  4. PREDNISONE [Suspect]
     Indication: PROPHYLAXIS AGAINST TRANSPLANT REJECTION
     Route: 048
  5. DIGITOXIN [Concomitant]
  6. TORASEMIDE [Concomitant]
  7. FLUVASTATIN [Concomitant]
  8. PANTOPRAZOL [Concomitant]
  9. COUMADINE [Concomitant]
     Dosage: TDD:  RELATED TO INR.
     Route: 065

REACTIONS (1)
  - Cardiac failure acute [Fatal]
